FAERS Safety Report 17131291 (Version 2)
Quarter: 2019Q4

REPORT INFORMATION
  Report Type: Report from Study
  Country: CA (occurrence: CA)
  Receive Date: 20191209
  Receipt Date: 20191218
  Transmission Date: 20200122
  Serious: Yes (Hospitalization)
  Sender: FDA-Public Use
  Company Number: CA-TAKEDA-2019TUS044064

PATIENT
  Age: 74 Year
  Sex: Female

DRUGS (12)
  1. EZETIMIBE. [Concomitant]
     Active Substance: EZETIMIBE
     Dosage: 10 MILLIGRAM
  2. ASACOL [Concomitant]
     Active Substance: MESALAMINE
     Dosage: 80 MILLIGRAM, TID
  3. VEDOLIZUMAB [Suspect]
     Active Substance: VEDOLIZUMAB
     Dosage: 300 MILLIGRAM
     Route: 042
     Dates: start: 20190409
  4. VEDOLIZUMAB [Suspect]
     Active Substance: VEDOLIZUMAB
     Dosage: 300 MILLIGRAM
     Route: 042
     Dates: end: 20191105
  5. SALOFALK                           /00000301/ [Concomitant]
     Active Substance: AMINOSALICYLIC ACID
     Dosage: 4 MILLIGRAM
  6. VEDOLIZUMAB [Suspect]
     Active Substance: VEDOLIZUMAB
     Indication: COLITIS ULCERATIVE
     Dosage: 300 MILLIGRAM
     Route: 042
     Dates: start: 20180307
  7. AMITRIPTYLINE [Concomitant]
     Active Substance: AMITRIPTYLINE
     Dosage: UNK
  8. SYMBICORT [Concomitant]
     Active Substance: BUDESONIDE\FORMOTEROL FUMARATE DIHYDRATE
     Dosage: UNK
  9. VITAMIN D NOS [Concomitant]
     Active Substance: VITAMIN D NOS
     Dosage: 1000 INTERNATIONAL UNIT, QD
  10. VEDOLIZUMAB [Suspect]
     Active Substance: VEDOLIZUMAB
     Dosage: 300 MILLIGRAM, Q4WEEKS
     Route: 042
     Dates: start: 20191105
  11. FRAGMIN [Concomitant]
     Active Substance: DALTEPARIN SODIUM
     Dosage: UNK
  12. BUDESONIDE. [Concomitant]
     Active Substance: BUDESONIDE
     Dosage: UNK

REACTIONS (3)
  - Colitis ulcerative [Unknown]
  - Faecal calprotectin increased [Not Recovered/Not Resolved]
  - Off label use [Unknown]

NARRATIVE: CASE EVENT DATE: 20190708
